FAERS Safety Report 5856830-2 (Version None)
Quarter: 2008Q3

REPORT INFORMATION
  Report Type: 
  Country: None (occurrence: None)
  Receive Date: 20080822
  Receipt Date: 20080822
  Transmission Date: 20090109
  Serious: Yes (Hospitalization)
  Sender: FDA-Public Use
  Company Number: None

PATIENT
  Sex: Female
  Weight: 61.5 kg

DRUGS (6)
  1. CYTARABINE [Suspect]
     Dosage: 13040 MG
  2. ETOPOSIDE [Suspect]
     Dosage: 392 MG
  3. IFOSFAMIDE [Suspect]
     Dosage: 9780 MG
  4. MESNA [Suspect]
     Dosage: 9780 MG
  5. METHOTREXATE [Suspect]
     Dosage: 12 MG
  6. RITUXIMAB (MOAB C2B8 ANTI CD20, CHIMERIC) [Suspect]
     Dosage: 12 MG

REACTIONS (2)
  - FATIGUE [None]
  - HAEMOGLOBIN DECREASED [None]
